FAERS Safety Report 6282367-5 (Version None)
Quarter: 2009Q3

REPORT INFORMATION
  Report Type: 
  Country: None (occurrence: None)
  Receive Date: 20090724
  Receipt Date: 20090720
  Transmission Date: 20100115
  Serious: Yes (Death, Hospitalization)
  Sender: FDA-Public Use
  Company Number: AR-WYE-H10037009

PATIENT
  Sex: Male
  Weight: 73 kg

DRUGS (3)
  1. TEMSIROLIMUS [Suspect]
     Indication: RENAL CANCER
     Route: 042
     Dates: start: 20090528, end: 20090707
  2. RANITIDINE [Concomitant]
     Indication: GASTRITIS PROPHYLAXIS
     Route: 048
     Dates: start: 20090101, end: 20090707
  3. METFORMIN HCL [Concomitant]
     Indication: DIABETES MELLITUS
     Route: 048
     Dates: start: 20070101, end: 20090707

REACTIONS (1)
  - PNEUMONIA [None]
